FAERS Safety Report 15729908 (Version 1)
Quarter: 2018Q4

REPORT INFORMATION
  Report Type: Spontaneous
  Country: US (occurrence: US)
  Receive Date: 20181216
  Receipt Date: 20181216
  Transmission Date: 20190205
  Serious: Yes (Other)
  Sender: FDA-Public Use
  Company Number: None

PATIENT
  Age: 32 Year
  Sex: Female

DRUGS (2)
  1. RESTASIS [Suspect]
     Active Substance: CYCLOSPORINE
     Indication: DRY EYE
     Dosage: ?          QUANTITY:60 VIALS;?
     Route: 047
  2. ONCE A DAY MULTIVITAMIN [Concomitant]

REACTIONS (6)
  - Product taste abnormal [None]
  - Immunosuppression [None]
  - Pharyngeal paraesthesia [None]
  - Pharyngitis streptococcal [None]
  - Tonsillitis [None]
  - Tonsillar disorder [None]

NARRATIVE: CASE EVENT DATE: 20181212
